FAERS Safety Report 23703429 (Version 1)
Quarter: 2024Q2

REPORT INFORMATION
  Report Type: Spontaneous
  Country: US (occurrence: None)
  Receive Date: 20240403
  Receipt Date: 20240403
  Transmission Date: 20240716
  Serious: Yes (Hospitalization)
  Sender: FDA-Public Use
  Company Number: None

PATIENT
  Age: 68 Year
  Sex: Male
  Weight: 79.38 kg

DRUGS (4)
  1. ATORVASTATIN CALCIUM [Suspect]
     Active Substance: ATORVASTATIN CALCIUM
     Indication: Blood cholesterol increased
     Dosage: 1 PILL PER DY BY MOUTH
     Route: 048
     Dates: start: 20200815, end: 20240301
  2. Losarton [Concomitant]
  3. BAYER ASPIRIN [Concomitant]
  4. TAMSULOSIN [Concomitant]

REACTIONS (5)
  - Urinary tract disorder [None]
  - Blood urine present [None]
  - Dysuria [None]
  - Speech disorder [None]
  - Bladder neoplasm [None]

NARRATIVE: CASE EVENT DATE: 20240301
